FAERS Safety Report 8141342-6 (Version None)
Quarter: 2012Q1

REPORT INFORMATION
  Report Type: 
  Country: None (occurrence: None)
  Receive Date: 20120103
  Receipt Date: 20111112
  Transmission Date: 20120608
  Serious: No
  Sender: FDA-Public Use
  Company Number: AE-2011-003445

PATIENT
  Age: 59 Year
  Sex: Male
  Weight: 87.9978 kg

DRUGS (4)
  1. PEGINTERFERON (PEGINTERFERON ALFA-2A) [Concomitant]
  2. CARDIZEM [Concomitant]
  3. INCIVEK [Suspect]
     Dosage: 2250 (750 MG, 3 IN 1 D), ORAL
     Route: 048
     Dates: start: 20111109
  4. RIBAVIRIN [Concomitant]

REACTIONS (2)
  - OEDEMA PERIPHERAL [None]
  - WEIGHT INCREASED [None]
